FAERS Safety Report 4645212-7 (Version None)
Quarter: 2005Q2

REPORT INFORMATION
  Report Type: 
  Country: None (occurrence: None)
  Receive Date: 20050426
  Receipt Date: 20041203
  Transmission Date: 20051028
  Serious: Yes (Other)
  Sender: FDA-Public Use
  Company Number: GB-GLAXOSMITHKLINE-B0359603A

PATIENT
  Sex: Male

DRUGS (5)
  1. PAROXETINE HCL [Suspect]
     Route: 065
     Dates: start: 19961001, end: 19970101
  2. EFFEXOR [Concomitant]
     Dates: start: 19970101
  3. LUSTRAL [Concomitant]
     Dates: start: 19980101
  4. REBOXETINE [Concomitant]
     Dates: start: 19980101
  5. FLUOXETINE [Concomitant]
     Dates: start: 20030401

REACTIONS (15)
  - ALCOHOLISM [None]
  - ASTHENIA [None]
  - DECREASED APPETITE [None]
  - DEPRESSED MOOD [None]
  - DIZZINESS [None]
  - FEELING ABNORMAL [None]
  - NIGHTMARE [None]
  - ORTHOSTATIC HYPOTENSION [None]
  - OVERDOSE [None]
  - PHOTOPSIA [None]
  - SELF MUTILATION [None]
  - SLEEP DISORDER [None]
  - SUICIDAL IDEATION [None]
  - SUICIDE ATTEMPT [None]
  - VISUAL DISTURBANCE [None]
